FAERS Safety Report 15587018 (Version 1)
Quarter: 2018Q4

REPORT INFORMATION
  Report Type: Spontaneous
  Country: FR (occurrence: FR)
  Receive Date: 20181105
  Receipt Date: 20181105
  Transmission Date: 20190205
  Serious: Yes (Death)
  Sender: FDA-Public Use
  Company Number: FR-SA-2018SA302985

PATIENT
  Age: 88 Year
  Sex: Female
  Weight: 71.5 kg

DRUGS (12)
  1. PREVISCAN [FLUINDIONE] [Suspect]
     Active Substance: FLUINDIONE
     Indication: ANTICOAGULANT THERAPY
     Dosage: 0.75 DF, QD
     Route: 048
  2. HYDROCHLOROTHIAZIDE. [Suspect]
     Active Substance: HYDROCHLOROTHIAZIDE
     Dosage: 150 MG, QD
     Route: 048
  3. SMOFKABIVEN [Concomitant]
     Active Substance: AMINO ACIDS\DEXTROSE\ELECTROLYTES NOS\SOYBEAN OIL
     Dosage: 1 DF, QD
     Route: 041
  4. AZARGA [Concomitant]
     Active Substance: BRINZOLAMIDE\TIMOLOL MALEATE
     Dosage: 2 DROP, QD
  5. METFORMINE [METFORMIN] [Concomitant]
     Active Substance: METFORMIN HYDROCHLORIDE
     Dosage: 2550 MG, QD
     Route: 048
  6. IRBESARTAN. [Suspect]
     Active Substance: IRBESARTAN
     Dosage: 150 MG, QD
     Route: 048
  7. ORGARAN [Suspect]
     Active Substance: DANAPAROID SODIUM
     Indication: ANTICOAGULANT THERAPY
     Dosage: 1500 IU, BID
     Dates: start: 20180206, end: 20180226
  8. INEXIUM [ESOMEPRAZOLE MAGNESIUM] [Concomitant]
     Active Substance: ESOMEPRAZOLE MAGNESIUM
     Dosage: 40 MG, QD
     Route: 048
  9. IRBESARTAN. [Suspect]
     Active Substance: IRBESARTAN
     Dosage: 150 MG, QD
     Route: 048
  10. HYDROCHLOROTHIAZIDE. [Suspect]
     Active Substance: HYDROCHLOROTHIAZIDE
     Dosage: 125 MG, QD
     Route: 048
  11. AMIODARONE [Concomitant]
     Active Substance: AMIODARONE
     Dosage: 400 MG, QD
     Route: 048
  12. CERNEVIT [ASCORBIC ACID;BIOTIN;COCARBOXYLASE TETRAHYDRATE;COLECALCIFER [Concomitant]
     Dosage: 1 DF, QD
     Route: 041

REACTIONS (4)
  - Haematoma [Fatal]
  - Shock haemorrhagic [Fatal]
  - Acute kidney injury [Fatal]
  - International normalised ratio increased [Fatal]

NARRATIVE: CASE EVENT DATE: 20180218
